FAERS Safety Report 15997672 (Version 1)
Quarter: 2019Q1

REPORT INFORMATION
  Report Type: Spontaneous
  Country: PL (occurrence: PL)
  Receive Date: 20190222
  Receipt Date: 20190222
  Transmission Date: 20190418
  Serious: Yes (Death, Life-Threatening)
  Sender: FDA-Public Use
  Company Number: PL-BAUSCH-BL-2019-005390

PATIENT
  Age: 67 Year
  Sex: Female
  Weight: 70 kg

DRUGS (22)
  1. GENSULIN R [Suspect]
     Active Substance: INSULIN HUMAN
     Route: 042
     Dates: start: 20181116, end: 20181116
  2. HEPA-MERZ (ORNITHINE ASPARTATE) [Suspect]
     Active Substance: ORNITHINE ASPARTATE
     Indication: PRODUCT USED FOR UNKNOWN INDICATION
     Route: 065
  3. GENSULIN R [Suspect]
     Active Substance: INSULIN HUMAN
     Route: 042
     Dates: start: 20181122, end: 20181122
  4. GENSULIN R [Suspect]
     Active Substance: INSULIN HUMAN
     Dosage: INTRAVENOUS INFUSION OF INSULIN BETWEEN 2 AND 7, 1 UNIT PER HOUR
     Route: 042
     Dates: start: 20181123, end: 20181123
  5. GLUCOSE [Suspect]
     Active Substance: DEXTROSE
     Route: 042
     Dates: start: 20181118, end: 20181125
  6. GLUCOSE [Suspect]
     Active Substance: DEXTROSE
     Route: 042
     Dates: start: 20181117, end: 20181117
  7. VANCOMYCIN [Suspect]
     Active Substance: VANCOMYCIN
     Indication: NOSOCOMIAL INFECTION
     Route: 065
  8. GENSULIN R [Suspect]
     Active Substance: INSULIN HUMAN
     Route: 042
     Dates: start: 20181123, end: 20181123
  9. GENSULIN R [Suspect]
     Active Substance: INSULIN HUMAN
     Dosage: 56 UNITS OF INSULIN (2 UNITS PER HOUR, 7 AM TILL 7 PM - 13 HOURS PLUS TWO TIMES 15 UNITS)
     Route: 042
     Dates: start: 20181124, end: 20181124
  10. GLUCOSE [Suspect]
     Active Substance: DEXTROSE
     Indication: PRODUCT USED FOR UNKNOWN INDICATION
     Route: 042
     Dates: start: 20181116, end: 20181116
  11. MEMOTROPIL [Suspect]
     Active Substance: PIRACETAM
     Indication: PRODUCT USED FOR UNKNOWN INDICATION
     Route: 065
  12. LEVONOR (NOREPINEPHRINE BITARTRATE) [Suspect]
     Active Substance: NOREPINEPHRINE BITARTRATE
     Indication: PRODUCT USED FOR UNKNOWN INDICATION
     Route: 065
  13. DEXAVEN [Suspect]
     Active Substance: DEXAMETHASONE
     Indication: PRODUCT USED FOR UNKNOWN INDICATION
     Route: 065
  14. GENSULIN R [Suspect]
     Active Substance: INSULIN HUMAN
     Route: 042
     Dates: start: 20181118, end: 20181118
  15. GENSULIN R [Suspect]
     Active Substance: INSULIN HUMAN
     Route: 042
     Dates: start: 20181121, end: 20181121
  16. GENSULIN R [Suspect]
     Active Substance: INSULIN HUMAN
     Route: 042
     Dates: start: 20181117, end: 20181117
  17. IMIPENEM [Suspect]
     Active Substance: IMIPENEM
     Indication: NOSOCOMIAL INFECTION
     Route: 065
  18. GENSULIN R [Suspect]
     Active Substance: INSULIN HUMAN
     Indication: DIABETES MELLITUS
     Route: 042
     Dates: start: 20181119, end: 20181119
  19. GENSULIN R [Suspect]
     Active Substance: INSULIN HUMAN
     Dosage: INFUSION OF INSULIN WAS CONTINUED.
     Route: 042
     Dates: start: 20181125, end: 20181125
  20. IPP [Suspect]
     Active Substance: PANTOPRAZOLE SODIUM
     Indication: PRODUCT USED FOR UNKNOWN INDICATION
     Route: 065
  21. GENSULIN R [Suspect]
     Active Substance: INSULIN HUMAN
     Route: 042
     Dates: start: 20181120, end: 20181120
  22. MORPHINE [Suspect]
     Active Substance: MORPHINE
     Indication: PRODUCT USED FOR UNKNOWN INDICATION
     Route: 042
     Dates: start: 20181124, end: 20181124

REACTIONS (12)
  - Chromaturia [Fatal]
  - Central nervous system injury [Fatal]
  - Hypoxia [Fatal]
  - Hyperkalaemia [Fatal]
  - Tachyarrhythmia [Fatal]
  - Acidosis [Fatal]
  - Heart rate increased [Fatal]
  - Hyperchloraemia [Fatal]
  - Blood pressure decreased [Fatal]
  - Prescribed overdose [Fatal]
  - Hypoglycaemia [Fatal]
  - Loss of consciousness [Fatal]

NARRATIVE: CASE EVENT DATE: 20181124
